FAERS Safety Report 11835250 (Version 1)
Quarter: 2015Q4

REPORT INFORMATION
  Report Type: Spontaneous
  Country: JP (occurrence: JP)
  Receive Date: 20151215
  Receipt Date: 20151215
  Transmission Date: 20160305
  Serious: Yes (Other)
  Sender: FDA-Public Use
  Company Number: JP-009507513-1512JPN007574

PATIENT
  Sex: Female

DRUGS (2)
  1. ZAFATEK TABLETS 100 MG [Suspect]
     Active Substance: TRELAGLIPTIN SUCCINATE
     Dosage: DAILY DOSE UNKNOWN, ONCE WEEKLY
     Route: 048
     Dates: start: 2015
  2. SITAGLIPTIN PHOSPHATE [Suspect]
     Active Substance: SITAGLIPTIN PHOSPHATE
     Dosage: DAILY DOSE UNKNOWN
     Route: 048

REACTIONS (3)
  - Cardiac failure [Unknown]
  - Emphysema [Unknown]
  - Angioedema [Unknown]

NARRATIVE: CASE EVENT DATE: 2015
